FAERS Safety Report 13892524 (Version 1)
Quarter: 2017Q3

REPORT INFORMATION
  Report Type: Spontaneous
  Country: US (occurrence: US)
  Receive Date: 20170822
  Receipt Date: 20170822
  Transmission Date: 20171127
  Serious: No
  Sender: FDA-Public Use
  Company Number: US-ROCHE-703190

PATIENT
  Sex: Male

DRUGS (11)
  1. ACTEMRA [Suspect]
     Active Substance: TOCILIZUMAB
     Indication: RHEUMATOID ARTHRITIS
     Dosage: FORM: INFUSION, DOSE REPORTED AS 864
     Route: 042
  2. GLIMEPIRIDE. [Concomitant]
     Active Substance: GLIMEPIRIDE
     Route: 065
  3. PREDNISOLONE. [Concomitant]
     Active Substance: PREDNISOLONE
     Route: 065
  4. ESOMEPRAZOLE [Concomitant]
     Active Substance: ESOMEPRAZOLE
     Route: 065
  5. DIAZEPAM. [Concomitant]
     Active Substance: DIAZEPAM
     Route: 065
  6. METFORMIN [Concomitant]
     Active Substance: METFORMIN HYDROCHLORIDE
     Route: 065
  7. OXYCONTIN [Concomitant]
     Active Substance: OXYCODONE HYDROCHLORIDE
     Route: 065
  8. LEFLUNOMIDE. [Concomitant]
     Active Substance: LEFLUNOMIDE
     Route: 065
  9. ESCITALOPRAM [Concomitant]
     Active Substance: ESCITALOPRAM OXALATE
     Route: 065
  10. COLOXYL [Concomitant]
     Active Substance: DOCUSATE SODIUM
     Route: 065
  11. RAMIPRIL. [Concomitant]
     Active Substance: RAMIPRIL
     Route: 065

REACTIONS (4)
  - Somnolence [Unknown]
  - Visual impairment [Unknown]
  - Hypoacusis [Unknown]
  - Fatigue [Unknown]
